FAERS Safety Report 20852019 (Version 1)
Quarter: 2022Q2

REPORT INFORMATION
  Report Type: Spontaneous
  Country: US (occurrence: US)
  Receive Date: 20220520
  Receipt Date: 20220520
  Transmission Date: 20220721
  Serious: No
  Sender: FDA-Public Use
  Company Number: US-BoehringerIngelheim-2022-BI-171617

PATIENT

DRUGS (4)
  1. MOBIC [Suspect]
     Active Substance: MELOXICAM
     Indication: Product used for unknown indication
  2. CELEBREX [Concomitant]
     Active Substance: CELECOXIB
     Indication: Product used for unknown indication
  3. COLESTIPOL [Concomitant]
     Active Substance: COLESTIPOL
     Indication: Product used for unknown indication
  4. OMEPRAZOLE [Concomitant]
     Active Substance: OMEPRAZOLE
     Indication: Product used for unknown indication

REACTIONS (12)
  - Cough [Unknown]
  - Abdominal pain [Unknown]
  - Diarrhoea [Unknown]
  - Diverticulum [Unknown]
  - Oesophageal stenosis [Unknown]
  - Hiatus hernia [Unknown]
  - Gastric polyps [Unknown]
  - Chest pain [Unknown]
  - Tachycardia [Unknown]
  - Pain in jaw [Unknown]
  - Regurgitation [Unknown]
  - Arthralgia [Unknown]
